FAERS Safety Report 13574467 (Version 1)
Quarter: 2017Q2

REPORT INFORMATION
  Report Type: Report from Study
  Country: IT (occurrence: IT)
  Receive Date: 20170523
  Receipt Date: 20170523
  Transmission Date: 20170830
  Serious: Yes (Other)
  Sender: FDA-Public Use
  Company Number: IT-TEVA-769676ACC

PATIENT
  Age: 34 Year
  Sex: Female

DRUGS (1)
  1. COPAXONE [Suspect]
     Active Substance: GLATIRAMER ACETATE
     Indication: MULTIPLE SCLEROSIS
     Route: 058
     Dates: start: 20170220, end: 20170410

REACTIONS (3)
  - Headache [Recovered/Resolved]
  - Hyperpyrexia [Recovered/Resolved]
  - Administration site reaction [Recovered/Resolved]

NARRATIVE: CASE EVENT DATE: 20170330
